FAERS Safety Report 18417526 (Version 1)
Quarter: 2020Q4

REPORT INFORMATION
  Report Type: Spontaneous
  Country: US (occurrence: US)
  Receive Date: 20201022
  Receipt Date: 20201022
  Transmission Date: 20210114
  Serious: No
  Sender: FDA-Public Use
  Company Number: 2020SGN02522

PATIENT
  Sex: Female

DRUGS (4)
  1. HERCEPTIN [Suspect]
     Active Substance: TRASTUZUMAB
     Indication: BREAST CANCER FEMALE
  2. DEXAMETHASONE. [Concomitant]
     Active Substance: DEXAMETHASONE
     Dosage: UNK, BID
  3. TUKYSA [Suspect]
     Active Substance: TUCATINIB
     Indication: BREAST CANCER FEMALE
     Dosage: 150 MG, QD
  4. TUKYSA [Suspect]
     Active Substance: TUCATINIB
     Dosage: 1 DF, BID

REACTIONS (22)
  - Memory impairment [Unknown]
  - Blood pressure increased [Unknown]
  - Pruritus [Recovering/Resolving]
  - Blister [Unknown]
  - Diarrhoea [Recovering/Resolving]
  - Cough [Unknown]
  - Peripheral swelling [Unknown]
  - Constipation [Unknown]
  - Oral disorder [Unknown]
  - Adverse drug reaction [Unknown]
  - Dry skin [Unknown]
  - Fatigue [Unknown]
  - Gait disturbance [Unknown]
  - Swelling face [Unknown]
  - Mouth ulceration [Unknown]
  - Epistaxis [Unknown]
  - Abdominal distension [Unknown]
  - Taste disorder [Unknown]
  - Blood albumin decreased [Unknown]
  - Alopecia [Unknown]
  - Urticaria [Unknown]
  - Lip ulceration [Unknown]
